FAERS Safety Report 5080811-2 (Version None)
Quarter: 2006Q3

REPORT INFORMATION
  Report Type: 
  Country: None (occurrence: None)
  Receive Date: 20060811
  Receipt Date: 20060731
  Transmission Date: 20061208
  Serious: Yes (Hospitalization, Other)
  Sender: FDA-Public Use
  Company Number: FACT0600312

PATIENT
  Age: 58 Year
  Sex: Male

DRUGS (5)
  1. FACTIVE [Suspect]
     Indication: RESPIRATORY TRACT INFECTION BACTERIAL
     Dates: start: 20060601, end: 20060601
  2. CORTICOSTEROIDS [Concomitant]
  3. LOTREL (AMLODIPINE, BENAZEPRIL HYDROCHLORIDE) TABLET [Concomitant]
  4. PRILOSEC [Concomitant]
  5. ASPIRIN [Concomitant]

REACTIONS (6)
  - ANAPHYLACTIC REACTION [None]
  - ANAPHYLACTIC SHOCK [None]
  - BLOOD GLUCOSE INCREASED [None]
  - ELECTROCARDIOGRAM QT PROLONGED [None]
  - INTERNATIONAL NORMALISED RATIO INCREASED [None]
  - LOSS OF CONSCIOUSNESS [None]
